FAERS Safety Report 9998982 (Version 1)
Quarter: 2014Q1

REPORT INFORMATION
  Report Type: Spontaneous
  Country: US (occurrence: None)
  Receive Date: 20140310
  Receipt Date: 20140310
  Transmission Date: 20141002
  Serious: Yes (Life-Threatening, Hospitalization)
  Sender: FDA-Public Use
  Company Number: US-ALKEM-000514

PATIENT
  Age: 35 Year
  Sex: Male

DRUGS (3)
  1. AMLODIPINE (AMLODIPINE) [Suspect]
  2. METOPROLOL (METOPROLOL) [Suspect]
  3. VERAPAMIL (VERAPAMIL) [Suspect]

REACTIONS (10)
  - Suicide attempt [None]
  - Overdose [None]
  - Shock [None]
  - Sinus bradycardia [None]
  - Blood pressure immeasurable [None]
  - Hyperkalaemia [None]
  - Cardiac arrest [None]
  - Renal failure acute [None]
  - Lactic acidosis [None]
  - Hypoglycaemia [None]
